FAERS Safety Report 21215229 (Version 1)
Quarter: 2022Q3

REPORT INFORMATION
  Report Type: Spontaneous
  Country: TR (occurrence: TR)
  Receive Date: 20220816
  Receipt Date: 20220816
  Transmission Date: 20221027
  Serious: Yes (Other)
  Sender: FDA-Public Use
  Company Number: TR-ALKEM LABORATORIES LIMITED-TR-ALKEM-2022-08297

PATIENT

DRUGS (1)
  1. GABAPENTIN [Suspect]
     Active Substance: GABAPENTIN
     Indication: Neuralgia
     Dosage: DAY 1 300 MG/DAY, DAY 2 600 MG/DAY, DAY 3 TO DAY 7 900 MG/DAY, AT THE END OF 2ND WEEK 1800 MG/DAY, A
     Route: 048

REACTIONS (1)
  - Haemoptysis [Unknown]
